FAERS Safety Report 16451604 (Version 1)
Quarter: 2019Q2

REPORT INFORMATION
  Report Type: Spontaneous
  Country: US (occurrence: US)
  Receive Date: 20190619
  Receipt Date: 20190619
  Transmission Date: 20190711
  Serious: No
  Sender: FDA-Public Use
  Company Number: US-ALLERGAN-1907729US

PATIENT
  Age: 39 Year
  Sex: Female

DRUGS (1)
  1. LO LOESTRIN FE [Suspect]
     Active Substance: ETHINYL ESTRADIOL\NORETHINDRONE ACETATE
     Indication: PREGNANCY
     Dosage: 1 MG, QD
     Route: 048
     Dates: start: 2012, end: 2012

REACTIONS (1)
  - Metrorrhagia [Recovered/Resolved with Sequelae]
